FAERS Safety Report 7770797-1 (Version None)
Quarter: 2011Q3

REPORT INFORMATION
  Report Type: 
  Country: None (occurrence: None)
  Receive Date: 20110922
  Receipt Date: 20110706
  Transmission Date: 20111222
  Serious: No
  Sender: FDA-Public Use
  Company Number: US-ASTRAZENECA-2011SE40401

PATIENT
  Age: 37 Year
  Sex: Male

DRUGS (2)
  1. SEROQUEL XR [Suspect]
     Indication: BIPOLAR DISORDER
     Dosage: TOTAL DAILY DOSE 300MG, FREQUENCY TWO TIMES A DAY
     Route: 048
  2. LAMICTAL [Concomitant]

REACTIONS (5)
  - AGGRESSION [None]
  - DEPRESSION [None]
  - ANXIETY DISORDER [None]
  - HYPERSOMNIA [None]
  - DRUG DOSE OMISSION [None]
